FAERS Safety Report 7349007-5 (Version None)
Quarter: 2011Q1

REPORT INFORMATION
  Report Type: 
  Country: None (occurrence: None)
  Receive Date: 20110314
  Receipt Date: 20110302
  Transmission Date: 20110831
  Serious: Yes (Hospitalization)
  Sender: FDA-Public Use
  Company Number: BR-US-EMD SERONO, INC.-7045315

PATIENT
  Sex: Female

DRUGS (6)
  1. MORPHINE [Concomitant]
  2. OMEPRAZOLE [Concomitant]
  3. FLUOXETINE [Concomitant]
  4. DALMADORM [Concomitant]
  5. AMPLICTIL [Concomitant]
  6. REBIF [Suspect]
     Indication: RELAPSING-REMITTING MULTIPLE SCLEROSIS
     Dates: start: 20100101

REACTIONS (2)
  - RENAL FAILURE [None]
  - MULTIPLE SCLEROSIS RELAPSE [None]
